FAERS Safety Report 7804483-6 (Version None)
Quarter: 2011Q4

REPORT INFORMATION
  Report Type: 
  Country: None (occurrence: None)
  Receive Date: 20111010
  Receipt Date: 20110928
  Transmission Date: 20120403
  Serious: Yes (Hospitalization)
  Sender: FDA-Public Use
  Company Number: US-BAYER-201036070NA

PATIENT
  Age: 34 Year
  Sex: Female
  Weight: 68.027 kg

DRUGS (2)
  1. AMOXICILLIN [Concomitant]
     Dosage: UNK UNK, PRN
  2. YASMIN [Suspect]
     Indication: CONTRACEPTION
     Dosage: UNK
     Route: 048
     Dates: start: 20010101, end: 20030401

REACTIONS (2)
  - TRANSIENT ISCHAEMIC ATTACK [None]
  - BREAST CANCER [None]
